FAERS Safety Report 9011049 (Version 5)
Quarter: 2013Q3

REPORT INFORMATION
  Report Type: Spontaneous
  Country: CA (occurrence: CA)
  Receive Date: 20130109
  Receipt Date: 20130905
  Transmission Date: 20140515
  Serious: Yes (Hospitalization, Other)
  Sender: FDA-Public Use
  Company Number: CA-GLAXOSMITHKLINE-A0993747A

PATIENT
  Age: 68 Year
  Sex: Female
  Weight: 76.4 kg

DRUGS (17)
  1. ADVAIR [Suspect]
     Indication: ASTHMA
     Dosage: 1PUFF THREE TIMES PER DAY
     Route: 055
     Dates: start: 20120525
  2. OXAZEPAM [Concomitant]
     Dosage: 30MG AT NIGHT
     Route: 065
  3. AMITRIPTYLINE [Concomitant]
     Dosage: 50MG AT NIGHT
     Route: 065
  4. SIMVASTATIN [Concomitant]
     Dosage: 40MG SINGLE DOSE
     Route: 065
  5. CYMBALTA [Concomitant]
     Dosage: 60MG AT NIGHT
     Route: 065
  6. PRAMIPEXOLE [Concomitant]
     Dosage: .25MG THREE TIMES PER DAY
     Route: 065
  7. LANSOPRAZOLE [Concomitant]
     Dosage: 30MG TWICE PER DAY
     Route: 065
  8. HYDROMORPH CONTIN [Concomitant]
     Dosage: 6MG THREE TIMES PER DAY
     Route: 065
  9. SPIROTONE [Concomitant]
     Dosage: 25MG TWICE PER DAY
     Route: 065
  10. BACLOFEN [Concomitant]
     Dosage: 10MG THREE TIMES PER DAY
     Route: 065
  11. DIGOXIN [Concomitant]
     Dosage: .125MG PER DAY
     Route: 065
  12. WARFARIN [Concomitant]
     Dosage: 1.5TAB PER DAY
     Route: 065
  13. FUROSEMIDE [Concomitant]
     Dosage: 1.5TAB PER DAY
     Route: 065
  14. DIAZEPAM [Concomitant]
     Dosage: .5MG AS REQUIRED
     Route: 065
  15. GABAPENTIN [Concomitant]
     Route: 065
  16. NITRO SPRAY [Concomitant]
  17. NITRO PATCH [Concomitant]

REACTIONS (10)
  - Rib fracture [Recovered/Resolved]
  - Fall [Unknown]
  - Cardiac pacemaker replacement [Recovered/Resolved]
  - Dyspnoea [Recovering/Resolving]
  - Palpitations [Recovering/Resolving]
  - Pain [Unknown]
  - Hypotension [Unknown]
  - Heart rate increased [Unknown]
  - Haemoglobin decreased [Recovered/Resolved]
  - International normalised ratio decreased [Recovered/Resolved]
